FAERS Safety Report 5951137-7 (Version None)
Quarter: 2008Q4

REPORT INFORMATION
  Report Type: 
  Country: None (occurrence: None)
  Receive Date: 20081112
  Receipt Date: 20081112
  Transmission Date: 20090506
  Serious: Yes (Hospitalization)
  Sender: FDA-Public Use
  Company Number: None

PATIENT
  Age: 46 Year
  Sex: Female
  Weight: 56.6996 kg

DRUGS (1)
  1. MIRAPEX [Suspect]
     Indication: RESTLESS LEGS SYNDROME

REACTIONS (7)
  - ANXIETY [None]
  - BLOOD PRESSURE INCREASED [None]
  - DEPRESSION [None]
  - DYSKINESIA [None]
  - INSOMNIA [None]
  - MIDDLE INSOMNIA [None]
  - NERVOUSNESS [None]
